FAERS Safety Report 19073492 (Version 1)
Quarter: 2021Q1

REPORT INFORMATION
  Report Type: Spontaneous
  Country: US (occurrence: US)
  Receive Date: 20210330
  Receipt Date: 20210330
  Transmission Date: 20210420
  Serious: Yes (Death, Life-Threatening, Hospitalization)
  Sender: FDA-Public Use
  Company Number: None

PATIENT
  Age: 36 Year
  Sex: Female
  Weight: 91 kg

DRUGS (1)
  1. CRIZANLIZUMAB?TMCA [Suspect]
     Active Substance: CRIZANLIZUMAB-TMCA
     Indication: SICKLE CELL DISEASE
     Dosage: ?          OTHER FREQUENCY:ONCE;?
     Route: 042
     Dates: start: 20210322, end: 20210327

REACTIONS (14)
  - Haemoglobin decreased [None]
  - Lung infiltration [None]
  - Refusal of treatment by patient [None]
  - Pain in extremity [None]
  - Pain [None]
  - Hypoxia [None]
  - Hypotension [None]
  - Tachycardia [None]
  - Arthralgia [None]
  - Cardiac arrest [None]
  - Sepsis [None]
  - Leukocytosis [None]
  - Pyrexia [None]
  - Loss of consciousness [None]

NARRATIVE: CASE EVENT DATE: 20210322
